FAERS Safety Report 12712381 (Version 1)
Quarter: 2016Q3

REPORT INFORMATION
  Report Type: Report from Study
  Country: NL (occurrence: NL)
  Receive Date: 20160902
  Receipt Date: 20160902
  Transmission Date: 20161109
  Serious: Yes (Death)
  Sender: FDA-Public Use
  Company Number: NL-PFIZER INC-2016410987

PATIENT

DRUGS (2)
  1. CISPLATIN. [Suspect]
     Active Substance: CISPLATIN
     Indication: GASTROOESOPHAGEAL CANCER
     Dosage: 80 MG/M2, EVERY 3 WEEKS (DAY 1)
     Route: 042
  2. GEMCITABINE HYDROCHLORIDE. [Suspect]
     Active Substance: GEMCITABINE HYDROCHLORIDE
     Indication: GASTROOESOPHAGEAL CANCER
     Dosage: 1250 MG/M2, EVERY 3 WEEKS (DAYS 1,8)
     Route: 042

REACTIONS (1)
  - Cardiac disorder [Fatal]
